FAERS Safety Report 7596602-4 (Version None)
Quarter: 2011Q3

REPORT INFORMATION
  Report Type: 
  Country: None (occurrence: None)
  Receive Date: 20110708
  Receipt Date: 20110629
  Transmission Date: 20111222
  Serious: Yes (Death, Hospitalization, Disabling)
  Sender: FDA-Public Use
  Company Number: JP-JNJFOC-20100400199

PATIENT
  Sex: Female
  Weight: 37 kg

DRUGS (23)
  1. DOXORUBICIN HYDROCHLORIDE [Suspect]
     Dosage: CYCLE 2
     Route: 042
     Dates: start: 20090915, end: 20090915
  2. MAGNESIUM OXIDE [Concomitant]
     Route: 048
     Dates: end: 20090915
  3. GASCON [Concomitant]
     Route: 048
     Dates: start: 20090919, end: 20090925
  4. DECADRON [Concomitant]
     Route: 042
     Dates: start: 20080818, end: 20090915
  5. SEROTONE [Concomitant]
     Indication: PROPHYLAXIS
     Route: 042
     Dates: start: 20090818, end: 20090915
  6. PURSENNID [Concomitant]
     Route: 048
  7. CLAFORAN [Concomitant]
     Indication: GASTROINTESTINAL INFECTION
     Route: 042
     Dates: start: 20090922, end: 20090928
  8. ZOSYN [Concomitant]
     Indication: GASTROINTESTINAL INFECTION
     Route: 042
     Dates: start: 20090928, end: 20090930
  9. LACTOMIN [Concomitant]
     Indication: GASTROINTESTINAL INFECTION
     Dates: start: 20090922, end: 20090925
  10. BIOFERMIN [Concomitant]
     Indication: GASTROINTESTINAL INFECTION
     Route: 048
     Dates: start: 20090922, end: 20090925
  11. CEFOPERAZONE SODIUM [Concomitant]
     Indication: GASTROINTESTINAL INFECTION
     Dates: start: 20091019, end: 20091021
  12. DAI-KENCHU-TO [Concomitant]
     Route: 048
     Dates: end: 20090920
  13. LECICARBON [Concomitant]
     Route: 054
  14. DIPHENHYDRAMINE HCL [Concomitant]
     Indication: GASTROINTESTINAL INFECTION
     Dosage: 2-3 G AS SITUATION DEMANDS
     Route: 061
     Dates: start: 20091010
  15. SANDOSTATIN [Concomitant]
     Indication: GASTROINTESTINAL INFECTION
     Route: 042
     Dates: start: 20091023
  16. DOXORUBICIN HYDROCHLORIDE [Suspect]
     Indication: OVARIAN CANCER RECURRENT
     Dosage: CYCLE 1
     Route: 042
     Dates: start: 20090818, end: 20090818
  17. ZOSYN [Concomitant]
     Route: 042
     Dates: start: 20091010, end: 20091013
  18. ZOSYN [Concomitant]
     Route: 042
     Dates: start: 20091010, end: 20091013
  19. ZOSYN [Concomitant]
     Indication: FEBRILE NEUTROPENIA
     Route: 042
     Dates: start: 20091021, end: 20091109
  20. DECADRON [Concomitant]
     Indication: PROPHYLAXIS
     Route: 048
     Dates: start: 20080818, end: 20090917
  21. ZOSYN [Concomitant]
     Route: 042
     Dates: start: 20091021, end: 20091109
  22. ZOSYN [Concomitant]
     Route: 042
     Dates: start: 20090928, end: 20090930
  23. CLOBETASOL PROPIONATE [Concomitant]
     Indication: TOXIC SKIN ERUPTION
     Dosage: 2-3 G
     Route: 061
     Dates: start: 20091014

REACTIONS (5)
  - OVARIAN CANCER [None]
  - ILEUS [None]
  - GASTROINTESTINAL INFECTION [None]
  - WHITE BLOOD CELL COUNT DECREASED [None]
  - FEBRILE NEUTROPENIA [None]
